FAERS Safety Report 4465306-9 (Version None)
Quarter: 2004Q4

REPORT INFORMATION
  Report Type: 
  Country: None (occurrence: None)
  Receive Date: 20041004
  Receipt Date: 20040922
  Transmission Date: 20050328
  Serious: Yes (Death, Hospitalization, Other)
  Sender: FDA-Public Use
  Company Number: CH-BRISTOL-MYERS SQUIBB COMPANY-12709945

PATIENT
  Sex: Female
  Weight: 116 kg

DRUGS (2)
  1. ABILIFY [Suspect]
     Indication: SCHIZOPHRENIA
  2. PRAZINE [Concomitant]

REACTIONS (4)
  - AGITATION [None]
  - ASPIRATION [None]
  - DEATH [None]
  - SCHIZOPHRENIA [None]
